FAERS Safety Report 9098515 (Version 2)
Quarter: 2013Q1

REPORT INFORMATION
  Report Type: Spontaneous
  Country: GB (occurrence: GB)
  Receive Date: 20130213
  Receipt Date: 20130222
  Transmission Date: 20140127
  Serious: Yes (Other)
  Sender: FDA-Public Use
  Company Number: GB-ROCHE-1190425

PATIENT
  Age: 51 None
  Sex: Male

DRUGS (6)
  1. RIBAVIRIN [Suspect]
     Indication: HEPATITIS C
     Route: 048
     Dates: start: 20121107
  2. RIBAVIRIN [Suspect]
     Dosage: TAKEN IN PAST
     Route: 048
  3. TELAPREVIR [Suspect]
     Indication: HEPATITIS C
     Route: 048
     Dates: start: 20121107
  4. TELAPREVIR [Suspect]
     Dosage: TAKEN IN PAST
     Route: 048
  5. PEGINTERFERON ALFA-2B [Suspect]
     Indication: HEPATITIS C
     Route: 058
     Dates: start: 20121107
  6. PEGINTERFERON ALFA-2B [Suspect]
     Dosage: TAKEN IN PAST
     Route: 058

REACTIONS (7)
  - Anger [Not Recovered/Not Resolved]
  - Tearfulness [Not Recovered/Not Resolved]
  - Nausea [Not Recovered/Not Resolved]
  - Diarrhoea [Not Recovered/Not Resolved]
  - Haemorrhoids [Not Recovered/Not Resolved]
  - Tooth abscess [Unknown]
  - Headache [Not Recovered/Not Resolved]
